FAERS Safety Report 19152969 (Version 1)
Quarter: 2021Q2

REPORT INFORMATION
  Report Type: Other
  Country: GB (occurrence: GB)
  Receive Date: 20210419
  Receipt Date: 20210419
  Transmission Date: 20210717
  Serious: Yes (Hospitalization, Other)
  Sender: FDA-Public Use
  Company Number: GB-ASPEN-GLO2021GB002553

PATIENT

DRUGS (15)
  1. ONDANSETRON [Suspect]
     Active Substance: ONDANSETRON
     Indication: NAUSEA
     Dosage: 8 MG, BID
     Route: 048
     Dates: start: 20210220, end: 20210221
  2. METOCLOPRAMIDE. [Suspect]
     Active Substance: METOCLOPRAMIDE
     Indication: NAUSEA
  3. CAELYX [Suspect]
     Active Substance: DOXORUBICIN HYDROCHLORIDE
     Indication: OVARIAN CANCER
     Dosage: FIRST 3 CYCLES; CAELYX + 5% GLUCOSE
     Route: 065
  4. GLUCOSE [Suspect]
     Active Substance: DEXTROSE
     Indication: MEDICATION DILUTION
     Dosage: 4TH CYCLE; CARBOPLATIN 450 MG + 5% GLUCOSE 500 ML OVER 1 HOUR
     Route: 041
     Dates: start: 20210219
  5. DEXAMETHASONE. [Suspect]
     Active Substance: DEXAMETHASONE
     Indication: VOMITING
  6. CAELYX [Suspect]
     Active Substance: DOXORUBICIN HYDROCHLORIDE
     Dosage: 4TH CYCLE; CAELYX 50 MG + 5% GLUCOSE 250 ML OVER 1 HOUR
     Route: 065
     Dates: start: 20210219
  7. ONDANSETRON [Suspect]
     Active Substance: ONDANSETRON
     Indication: VOMITING
  8. CARBOPLATIN. [Suspect]
     Active Substance: CARBOPLATIN
     Indication: OVARIAN CANCER
     Dosage: 4TH CYCLE; CARBOPLATIN 450 MG + 5% GLUCOSE 500 ML GIVEN OVER 1 HOUR
     Route: 065
     Dates: start: 20210219
  9. PARACETAMOL [Concomitant]
     Active Substance: ACETAMINOPHEN
     Indication: PAIN
     Dosage: 500 MG?1 G UPTO FOUR TIMES A DAY, AS REQUIRED; NOT KNOWN? LONG TERM
     Route: 048
  10. GLUCOSE [Suspect]
     Active Substance: DEXTROSE
     Dosage: FIRST 3 CYCLES; CAELYX + 5% GLUCOSE
     Route: 041
  11. GLUCOSE [Suspect]
     Active Substance: DEXTROSE
     Dosage: 4TH CYCLE; CAELYX 50 MG + 5% GLUCOSE 250 ML OVER 1 HOUR
     Route: 041
     Dates: start: 20210219
  12. CARBOPLATIN. [Suspect]
     Active Substance: CARBOPLATIN
     Dosage: FIRST 3 CYCLES; CARBOPLATIN + 5% GLUCOSE
     Route: 065
  13. METOCLOPRAMIDE. [Suspect]
     Active Substance: METOCLOPRAMIDE
     Indication: VOMITING
     Dosage: UPTO 3 TIMES A DAY, AS REQUIRED
     Route: 048
     Dates: start: 20201113
  14. DEXAMETHASONE. [Suspect]
     Active Substance: DEXAMETHASONE
     Indication: NAUSEA
     Dosage: 4 MG, BID
     Route: 048
     Dates: start: 20210220, end: 20210221
  15. GLUCOSE [Suspect]
     Active Substance: DEXTROSE
     Dosage: FIRST 3 CYCLES; CARBOPLATIN + 5% GLUCOSE
     Route: 041

REACTIONS (4)
  - Mouth ulceration [Unknown]
  - Pancytopenia [Recovering/Resolving]
  - Myelosuppression [Unknown]
  - Neutropenic sepsis [Recovering/Resolving]

NARRATIVE: CASE EVENT DATE: 20210308
